FAERS Safety Report 18249274 (Version 2)
Quarter: 2021Q4

REPORT INFORMATION
  Report Type: Spontaneous
  Country: DE (occurrence: DE)
  Receive Date: 20200909
  Receipt Date: 20211223
  Transmission Date: 20220303
  Serious: Yes (Hospitalization, Other)
  Sender: FDA-Public Use
  Company Number: DE-SA-2020SA234768

PATIENT
  Age: 27 Year
  Sex: Female

DRUGS (3)
  1. LEMTRADA [Suspect]
     Active Substance: ALEMTUZUMAB
     Indication: Multiple sclerosis
     Dosage: 12 MG, QD
     Route: 041
     Dates: start: 20160405, end: 20160407
  2. LEMTRADA [Suspect]
     Active Substance: ALEMTUZUMAB
     Dosage: 12 MG
     Route: 041
     Dates: start: 20150402, end: 20150406
  3. ELEVIT [MINERALS NOS;VITAMINS NOS] [Concomitant]
     Dosage: UNK UNK, QD

REACTIONS (22)
  - Cervical incompetence [Recovered/Resolved]
  - Polyarteritis nodosa [Not Recovered/Not Resolved]
  - Blood sodium decreased [Unknown]
  - Blood creatinine decreased [Unknown]
  - Blood ketone body increased [Unknown]
  - Salivary gland cancer [Not Recovered/Not Resolved]
  - C-reactive protein increased [Unknown]
  - Multiple sclerosis [Not Recovered/Not Resolved]
  - Red blood cell count decreased [Unknown]
  - Haemoglobin decreased [Unknown]
  - Lymphoid tissue hyperplasia [Not Recovered/Not Resolved]
  - Lymphadenitis [Not Recovered/Not Resolved]
  - Neurodermatitis [Not Recovered/Not Resolved]
  - Skin disorder [Not Recovered/Not Resolved]
  - White blood cell count increased [Unknown]
  - Haematocrit decreased [Unknown]
  - Protein total increased [Unknown]
  - Red blood cell count increased [Unknown]
  - Lymphocyte percentage decreased [Unknown]
  - Lymphadenectomy [Not Recovered/Not Resolved]
  - Drug exposure before pregnancy [Recovered/Resolved]
  - Adverse drug reaction [Unknown]

NARRATIVE: CASE EVENT DATE: 20180601
